FAERS Safety Report 25732119 (Version 1)
Quarter: 2025Q3

REPORT INFORMATION
  Report Type: Spontaneous
  Country: US (occurrence: US)
  Receive Date: 20250827
  Receipt Date: 20250827
  Transmission Date: 20251021
  Serious: No
  Sender: MYLAN
  Company Number: US-MYLANLABS-2025M1069525

PATIENT
  Sex: Female

DRUGS (5)
  1. ESTRADIOL TRANSDERMAL SYSTEM [Suspect]
     Active Substance: ESTRADIOL
     Indication: Hormone replacement therapy
     Dosage: 0.1 MILLIGRAM, QD (PER DAY TWICE WEEKLY)
     Dates: start: 20250705
  2. ATORVASTATIN [Concomitant]
     Active Substance: ATORVASTATIN
  3. GLIPIZIDE [Concomitant]
     Active Substance: GLIPIZIDE
  4. GABAPENTIN [Concomitant]
     Active Substance: GABAPENTIN
  5. METFORMIN [Concomitant]
     Active Substance: METFORMIN HYDROCHLORIDE

REACTIONS (4)
  - Burning sensation [Unknown]
  - Pruritus [Unknown]
  - Skin irritation [Unknown]
  - Product adhesion issue [Unknown]

NARRATIVE: CASE EVENT DATE: 20250101
